FAERS Safety Report 12740042 (Version 15)
Quarter: 2017Q4

REPORT INFORMATION
  Report Type: Spontaneous
  Country: US (occurrence: US)
  Receive Date: 20160913
  Receipt Date: 20171023
  Transmission Date: 20180320
  Serious: Yes (Other)
  Sender: FDA-Public Use
  Company Number: US-TAKEDA-2016MPI007896

PATIENT
  Age: 81 Year
  Sex: Female
  Weight: 73.47 kg

DRUGS (2)
  1. NINLARO [Suspect]
     Active Substance: IXAZOMIB CITRATE
     Indication: PLASMA CELL MYELOMA
     Dosage: 4 MG, UNK
     Route: 048
     Dates: start: 20160816
  2. NINLARO [Suspect]
     Active Substance: IXAZOMIB CITRATE
     Dosage: 3 MG, UNK
     Route: 048
     Dates: start: 20160822, end: 20170301

REACTIONS (26)
  - Dry eye [Unknown]
  - Restless legs syndrome [Unknown]
  - Hypoacusis [Unknown]
  - Decreased appetite [Unknown]
  - Urinary tract infection [Unknown]
  - Blood creatinine increased [Unknown]
  - Insomnia [Unknown]
  - Rash generalised [Unknown]
  - Lung infection [Unknown]
  - Sinusitis [Unknown]
  - Tumour marker increased [Unknown]
  - Diarrhoea [Recovering/Resolving]
  - Nausea [Unknown]
  - Dehydration [Unknown]
  - Productive cough [Unknown]
  - Macular degeneration [Unknown]
  - Memory impairment [Unknown]
  - Disturbance in attention [Unknown]
  - Pain [Unknown]
  - Visual impairment [Unknown]
  - Dysgeusia [Unknown]
  - Neuropathy peripheral [Recovering/Resolving]
  - Herpes zoster [Not Recovered/Not Resolved]
  - Skin discolouration [Unknown]
  - Headache [Unknown]
  - Fatigue [Unknown]

NARRATIVE: CASE EVENT DATE: 20160908
